FAERS Safety Report 7621413-0 (Version None)
Quarter: 2011Q3

REPORT INFORMATION
  Report Type: 
  Country: None (occurrence: None)
  Receive Date: 20110719
  Receipt Date: 20110704
  Transmission Date: 20111222
  Serious: Yes (Hospitalization)
  Sender: FDA-Public Use
  Company Number: JP-BAYER-201010862BYL

PATIENT
  Age: 69 Year
  Sex: Female
  Weight: 44.1 kg

DRUGS (23)
  1. OXAROL [Concomitant]
     Dosage: 5 ?G, TIW
     Route: 042
     Dates: end: 20091213
  2. OXAROL [Concomitant]
     Dosage: 2.5 ?G, BIW
     Route: 042
     Dates: start: 20110401
  3. OMEPRAZOLE [Concomitant]
     Dosage: SINCE MORE THAN 4 WEEKS BEFORE
     Route: 048
  4. AMOBAN [Concomitant]
     Dosage: SINCE MORE THAN 4 WEEKS BEFORE
     Route: 048
  5. DIOVAN [Concomitant]
     Dosage: SINCE MORE THAN 4 WEEKS BEFORE
     Route: 048
  6. FOSRENOL [Suspect]
     Dosage: 750 MG, QD
     Route: 048
     Dates: start: 20110131, end: 20110327
  7. OXAROL [Concomitant]
     Dosage: 5 ?G, OW
     Route: 042
     Dates: start: 20091228, end: 20100110
  8. ZESULAN [Concomitant]
     Dosage: SINCE MORE THAN 4 WEEKS BEFORE
     Route: 048
  9. OXAROL [Concomitant]
     Dosage: 5 ?G, BIW
     Route: 042
     Dates: start: 20091214, end: 20091227
  10. OXAROL [Concomitant]
     Dosage: 2.5 ?G, OW
     Route: 042
     Dates: start: 20100823, end: 20110331
  11. CALCIUM CARBONATE [Concomitant]
     Indication: HYPERPHOSPHATAEMIA
     Dosage: SINCE MORE THAN 4 WEEKS BEFORE
     Route: 048
     Dates: start: 20090807, end: 20091130
  12. DIART [Concomitant]
     Dosage: SINCE BEFORE OVER 4 WEEKS
     Route: 048
  13. CONIEL [Concomitant]
     Dosage: SINCE MORE THAN 4 WEEKS BEFORE
     Route: 048
  14. METOPROLOL TARTRATE [Concomitant]
     Dosage: SINCE MORE THAN 4 WEEKS BEFORE
     Route: 048
  15. CINACALCET HYDROCHLORIDE [Concomitant]
     Indication: HYPERPARATHYROIDISM SECONDARY
     Dosage: DAILY DOSE 25 MG
     Route: 048
     Dates: start: 20100309
  16. FOSRENOL [Suspect]
     Indication: HYPERPHOSPHATAEMIA
     Dosage: 750 MG, QD
     Route: 048
     Dates: start: 20090601, end: 20100111
  17. FOSRENOL [Suspect]
     Dosage: 1500 MG, QD
     Route: 048
     Dates: start: 20110328
  18. OXAROL [Concomitant]
     Dosage: 2.5 ?G, TIW
     Route: 042
     Dates: start: 20100111, end: 20100516
  19. FOSRENOL [Suspect]
     Dosage: 1500 MG, QD
     Dates: start: 20100111, end: 20110130
  20. ASPIRIN [Suspect]
     Indication: SHUNT MALFUNCTION
     Dosage: 100 MG (DAILY DOSE), , ORAL
     Route: 048
     Dates: start: 20090608, end: 20090611
  21. OXAROL [Concomitant]
     Dosage: 2.5 ?G, BIW
     Route: 042
     Dates: start: 20100517
  22. ADALAT CC [Concomitant]
     Dosage: SINCE MORE THAN 4 WEEKS BEFORE
     Route: 048
  23. EPOGIN [Concomitant]
     Dosage: SINCE MORE THAN 4 WEEKS BEFORE
     Route: 042

REACTIONS (4)
  - ANAEMIA [None]
  - SHUNT MALFUNCTION [None]
  - HEPATIC FUNCTION ABNORMAL [None]
  - PRURITUS [None]
